FAERS Safety Report 10079339 (Version 1)
Quarter: 2014Q2

REPORT INFORMATION
  Report Type: Spontaneous
  Country: DE (occurrence: DE)
  Receive Date: 20140415
  Receipt Date: 20140415
  Transmission Date: 20141212
  Serious: Yes (Death, Other)
  Sender: FDA-Public Use
  Company Number: PHHY2014DE045265

PATIENT
  Sex: Male

DRUGS (13)
  1. CICLOSPORIN [Suspect]
     Indication: PROPHYLAXIS AGAINST GRAFT VERSUS HOST DISEASE
  2. CICLOSPORIN [Suspect]
     Indication: GRAFT VERSUS HOST DISEASE
  3. METHOTREXATE [Suspect]
     Indication: PROPHYLAXIS AGAINST GRAFT VERSUS HOST DISEASE
  4. METHOTREXATE [Suspect]
     Indication: GRAFT VERSUS HOST DISEASE
  5. PREDNISONE [Suspect]
     Indication: GRAFT VERSUS HOST DISEASE
  6. BUSULFAN [Concomitant]
     Indication: ACUTE MYELOID LEUKAEMIA
     Dosage: 3.3 MG/KG, QID
     Route: 042
  7. CYCLOPHOSPHAMIDE [Concomitant]
     Indication: ACUTE MYELOID LEUKAEMIA
     Dosage: 60 MG/KG, BID
     Route: 042
  8. ETOPOSIDE [Concomitant]
     Indication: ACUTE MYELOID LEUKAEMIA
     Dosage: 30 MG/KG, QD
     Route: 042
  9. ANTITHYMOCYTE IMMUNOGLOBULIN [Concomitant]
     Dosage: 2.5 MG/KG, PER DAY
     Route: 042
  10. MITOXANTRONE [Concomitant]
     Indication: ACUTE MYELOID LEUKAEMIA
     Dosage: 7 MG/M2, PER DAY
     Route: 042
  11. FLUDARABINE [Concomitant]
     Indication: ACUTE MYELOID LEUKAEMIA
     Dosage: 30 MG/M2, PER DAY
     Route: 042
  12. CYTOSINE ARABINOSIDE [Concomitant]
     Indication: ACUTE MYELOID LEUKAEMIA
     Dosage: 125 MG/M2, PER DAY
     Route: 042
  13. MOLGRAMOSTIM [Concomitant]
     Dosage: 60 MG/M2, PER DAY

REACTIONS (2)
  - Myocarditis infectious [Fatal]
  - Leukaemia recurrent [Unknown]
